FAERS Safety Report 9053598 (Version 2)
Quarter: 2013Q1

REPORT INFORMATION
  Report Type: Spontaneous
  Country: CN (occurrence: CN)
  Receive Date: 20130208
  Receipt Date: 20130213
  Transmission Date: 20140127
  Serious: Yes (Other)
  Sender: FDA-Public Use
  Company Number: PHHY2013CN010148

PATIENT
  Age: 21 Year
  Sex: Male

DRUGS (4)
  1. METOPROLOL [Suspect]
     Indication: HYPERTENSION
     Dosage: 12.5 MG, BID
  2. METOPROLOL [Suspect]
     Dosage: 25 MG, BID
  3. AMLODIPINE [Concomitant]
     Dosage: 2.5 MG, DAILY
  4. ISOSORBIDE MONONITRATE [Concomitant]
     Indication: HYPERTENSION
     Dosage: 10 MG, TID

REACTIONS (12)
  - Delirium [Recovered/Resolved]
  - Poor quality sleep [Recovered/Resolved]
  - Anxiety [Recovered/Resolved]
  - Fear [Recovered/Resolved]
  - Distractibility [Recovered/Resolved]
  - Disorientation [Recovered/Resolved]
  - Disturbance in attention [Recovered/Resolved]
  - Incoherent [Recovered/Resolved]
  - Hallucination, auditory [Recovered/Resolved]
  - Confusional state [Recovered/Resolved]
  - Thinking abnormal [Recovered/Resolved]
  - Panic attack [Recovered/Resolved]
